FAERS Safety Report 8377089-0 (Version None)
Quarter: 2012Q2

REPORT INFORMATION
  Report Type: 
  Country: None (occurrence: None)
  Receive Date: 20120522
  Receipt Date: 20120510
  Transmission Date: 20120825
  Serious: No
  Sender: FDA-Public Use
  Company Number: US-ELI_LILLY_AND_COMPANY-US201203001127

PATIENT
  Sex: Female

DRUGS (10)
  1. COUMADIN [Concomitant]
  2. VERAPAMIL [Concomitant]
  3. POTASSIUM CHLORIDE [Concomitant]
  4. DIGOXIN [Concomitant]
  5. CALCIUM [Concomitant]
  6. ADVAIR DISKUS 100/50 [Concomitant]
  7. BENICAR [Concomitant]
  8. CHLORTHALIDONE [Concomitant]
  9. FORTEO [Suspect]
     Indication: OSTEOPOROSIS
     Dosage: 20 UG, QD
     Route: 058
     Dates: start: 20120201, end: 20120318
  10. SINGULAIR [Concomitant]

REACTIONS (14)
  - HYPERTENSION [None]
  - VISUAL IMPAIRMENT [None]
  - FEELING ABNORMAL [None]
  - DIZZINESS [None]
  - HEADACHE [None]
  - MUSCLE SPASMS [None]
  - INTENTIONAL DRUG MISUSE [None]
  - GAIT DISTURBANCE [None]
  - ASTHENIA [None]
  - HYPERSENSITIVITY [None]
  - FATIGUE [None]
  - HYPERHIDROSIS [None]
  - NECK PAIN [None]
  - PAIN [None]
